FAERS Safety Report 24995525 (Version 1)
Quarter: 2025Q1

REPORT INFORMATION
  Report Type: Spontaneous
  Country: GB (occurrence: GB)
  Receive Date: 20250221
  Receipt Date: 20250221
  Transmission Date: 20250409
  Serious: Yes (Other)
  Sender: BAXTER
  Company Number: None

PATIENT
  Age: 46 Year
  Sex: Female

DRUGS (1)
  1. TRANSDERM SCOP [Suspect]
     Active Substance: SCOPOLAMINE
     Indication: Adverse drug reaction
     Route: 065
     Dates: start: 20250206

REACTIONS (5)
  - Faecaloma [Not Recovered/Not Resolved]
  - Migraine [Not Recovered/Not Resolved]
  - Diplopia [Recovering/Resolving]
  - Toothache [Not Recovered/Not Resolved]
  - Urinary retention [Recovered/Resolved with Sequelae]

NARRATIVE: CASE EVENT DATE: 20250206
